FAERS Safety Report 7532882-9 (Version None)
Quarter: 2011Q2

REPORT INFORMATION
  Report Type: 
  Country: None (occurrence: None)
  Receive Date: 20110608
  Receipt Date: 20110602
  Transmission Date: 20111010
  Serious: Yes (Other)
  Sender: FDA-Public Use
  Company Number: US-PFIZER INC-2010092772

PATIENT
  Sex: Female
  Weight: 74.376 kg

DRUGS (19)
  1. K-DUR [Concomitant]
     Dosage: 10 MG
  2. BISACODYL [Concomitant]
     Dosage: 5 MG, AS NEEDED
  3. PREVACID [Concomitant]
     Dosage: 325 MG, 4X/DAY
  4. LEXAPRO [Concomitant]
     Dosage: 20 MG, UNK
     Route: 048
  5. LYRICA [Suspect]
     Indication: FIBROMYALGIA
     Dosage: 200 MG DAILY
     Route: 048
     Dates: start: 20090101
  6. ENBREL [Suspect]
     Indication: FIBROMYALGIA
     Dosage: 50 MG, WEEKLY
     Dates: start: 20090101, end: 20100101
  7. METHADONE [Concomitant]
     Dosage: 10 MG FOUR TABLETS EVERY HOUR
  8. METHADONE [Concomitant]
     Dosage: 40 MG, EVERY 8 HOURS
  9. CYMBALTA [Concomitant]
     Dosage: 60 MG, 2X/DAY
  10. ROBAXIN [Concomitant]
     Dosage: 750 MG TWO CAPSULE, 4X/DAY
  11. NORCO [Concomitant]
     Dosage: 7/325 MG, 4X/DAY
  12. KLONOPIN [Concomitant]
     Dosage: 2 MG, 4X/DAY
  13. LASIX [Concomitant]
     Dosage: 40 MG ONCE A DAY
  14. ROBAXIN [Concomitant]
     Dosage: 1500 MG (2 TABLETS OF 750 MG), 3X/DAY
     Route: 048
  15. ACETYLSALICYLIC ACID [Concomitant]
     Dosage: UNK
  16. BUPROPION [Concomitant]
     Dosage: 5 MG, 2X/DAY
  17. PERCOCET [Concomitant]
     Dosage: 15/650 MG (TWO TABLETS 7.5/325MG), EVERY 4-6 HOURS
     Route: 048
  18. ACIPHEX [Concomitant]
     Dosage: 20 MG ONCE A DAY
  19. PHENAZOPYRIDINE HCL TAB [Concomitant]
     Dosage: 200 MG, AS NEEDED

REACTIONS (7)
  - NAUSEA [None]
  - RECTOCELE [None]
  - WEIGHT INCREASED [None]
  - SOMNOLENCE [None]
  - VAGINAL FISTULA [None]
  - WEIGHT DECREASED [None]
  - MALAISE [None]
